FAERS Safety Report 9010324 (Version 1)
Quarter: 2013Q1

REPORT INFORMATION
  Report Type: Report from Study
  Country: US (occurrence: US)
  Receive Date: 20130111
  Receipt Date: 20130111
  Transmission Date: 20140127
  Serious: Yes (Other)
  Sender: FDA-Public Use
  Company Number: US-US-EMD SERONO, INC.-7186109

PATIENT
  Sex: Female

DRUGS (2)
  1. REBIF [Suspect]
     Indication: MULTIPLE SCLEROSIS
     Route: 058
     Dates: start: 20020825
  2. DEPAKOTE [Concomitant]
     Indication: BIPOLAR DISORDER

REACTIONS (11)
  - Cardiac disorder [Recovered/Resolved]
  - Transient ischaemic attack [Recovered/Resolved]
  - Rotator cuff syndrome [Not Recovered/Not Resolved]
  - Influenza [Recovered/Resolved]
  - Arthritis [Not Recovered/Not Resolved]
  - Injection site erosion [Recovering/Resolving]
  - Liver function test abnormal [Recovering/Resolving]
  - Injection site bruising [Not Recovered/Not Resolved]
  - Injection site nodule [Not Recovered/Not Resolved]
  - Injection site rash [Recovering/Resolving]
  - Influenza like illness [Not Recovered/Not Resolved]
